FAERS Safety Report 18335180 (Version 3)
Quarter: 2020Q4

REPORT INFORMATION
  Report Type: Report from Study
  Country: IT (occurrence: IT)
  Receive Date: 20201001
  Receipt Date: 20201013
  Transmission Date: 20210113
  Serious: Yes (Hospitalization)
  Sender: FDA-Public Use
  Company Number: IT-PFIZER INC-2020376281

PATIENT
  Age: 76 Year
  Sex: Male

DRUGS (4)
  1. SEROQUEL [Concomitant]
     Active Substance: QUETIAPINE FUMARATE
  2. DOXAZOSIN MESILATE [Suspect]
     Active Substance: DOXAZOSIN MESYLATE
     Indication: HYPERTENSION
     Dosage: 1 DF, 1X/DAY
     Route: 048
     Dates: start: 20130101
  3. CARDIOASPIRIN [Concomitant]
     Active Substance: ASPIRIN
  4. LOBIDIUR [Interacting]
     Active Substance: HYDROCHLOROTHIAZIDE\NEBIVOLOL HYDROCHLORIDE
     Indication: HYPERTENSION
     Dosage: 1 DF, 1X/DAY
     Route: 048
     Dates: start: 20130101

REACTIONS (6)
  - Syncope [Unknown]
  - Drug interaction [Unknown]
  - Wound [Unknown]
  - Dizziness [Unknown]
  - Tooth avulsion [Unknown]
  - Face injury [Unknown]

NARRATIVE: CASE EVENT DATE: 20200806
